FAERS Safety Report 15531915 (Version 5)
Quarter: 2019Q3

REPORT INFORMATION
  Report Type: Spontaneous
  Country: US (occurrence: US)
  Receive Date: 20181019
  Receipt Date: 20190808
  Transmission Date: 20191004
  Serious: No
  Sender: FDA-Public Use
  Company Number: US-B.I. PHARMACEUTICALS,INC./RIDGEFIELD-2018-BI-050190

PATIENT
  Age: 89 Year
  Sex: Female

DRUGS (1)
  1. SPIRIVA [Suspect]
     Active Substance: TIOTROPIUM BROMIDE MONOHYDRATE
     Indication: CHRONIC OBSTRUCTIVE PULMONARY DISEASE
     Dosage: FORM STRENGTH: 18 MCG; FORMULATION: CAPSULE? ACTION(S) TAKEN WITH PRODUCT: DOSE NOT CHANGED
     Route: 055

REACTIONS (4)
  - Product quality issue [Unknown]
  - Product taste abnormal [Unknown]
  - Overdose [Recovered/Resolved]
  - Overdose [Unknown]

NARRATIVE: CASE EVENT DATE: 201810
